FAERS Safety Report 4951297-0 (Version None)
Quarter: 2006Q1

REPORT INFORMATION
  Report Type: 
  Country: None (occurrence: None)
  Receive Date: 20060317
  Receipt Date: 20060308
  Transmission Date: 20060701
  Serious: Yes (Other)
  Sender: FDA-Public Use
  Company Number: 2006JP000616

PATIENT
  Age: 61 Year
  Sex: Female

DRUGS (3)
  1. FUNGUARD                 (MICAFUNGIN) [Suspect]
     Indication: BRONCHOPULMONARY ASPERGILLOSIS
     Dosage: IV DRIP
     Route: 041
  2. CIPROFLOXACIN HYDROCHLORIDE [Concomitant]
  3. HABEKACIN                 (ARBEKACIN) [Concomitant]

REACTIONS (1)
  - TOXIC EPIDERMAL NECROLYSIS [None]
